FAERS Safety Report 20500308 (Version 1)
Quarter: 2022Q1

REPORT INFORMATION
  Report Type: Spontaneous
  Country: US (occurrence: None)
  Receive Date: 20220218
  Receipt Date: 20220218
  Transmission Date: 20220424
  Serious: Yes (Hospitalization)
  Sender: FDA-Public Use
  Company Number: None

PATIENT
  Age: 88 Year
  Weight: 69.85 kg

DRUGS (1)
  1. ERLEADA [Suspect]
     Active Substance: APALUTAMIDE
     Indication: Prostate cancer
     Dosage: FREQUENCY : DAILY;?
     Route: 048
     Dates: start: 20220120, end: 20220210

REACTIONS (5)
  - Back pain [None]
  - Therapy interrupted [None]
  - Heart valve incompetence [None]
  - Pain in extremity [None]
  - Abdominal pain upper [None]

NARRATIVE: CASE EVENT DATE: 20220210
